FAERS Safety Report 10197911 (Version 2)
Quarter: 2018Q2

REPORT INFORMATION
  Report Type: Spontaneous
  Country: US (occurrence: US)
  Receive Date: 20140527
  Receipt Date: 20180607
  Transmission Date: 20180711
  Serious: No
  Sender: FDA-Public Use
  Company Number: US-PFIZER INC-2014141280

PATIENT
  Age: 52 Year
  Sex: Female

DRUGS (1)
  1. LYRICA [Suspect]
     Active Substance: PREGABALIN
     Dosage: 150 MG, UNK, (QTY 30/DAYS SUPPLY 7)

REACTIONS (5)
  - Disturbance in attention [Unknown]
  - Insomnia [Unknown]
  - Prescribed overdose [Unknown]
  - Pruritus [Unknown]
  - Pain in extremity [Unknown]
